FAERS Safety Report 5272580-8 (Version None)
Quarter: 2007Q1

REPORT INFORMATION
  Report Type: 
  Country: None (occurrence: None)
  Receive Date: 20061219
  Receipt Date: 20060913
  Transmission Date: 20070707
  Serious: Yes (Other)
  Sender: FDA-Public Use
  Company Number: US-JNJFOC-20060904290

PATIENT
  Age: 33 Year
  Sex: Female
  Weight: 93.8946 kg

DRUGS (1)
  1. ORTHO EVRA [Suspect]
     Indication: CONTRACEPTION
     Dosage: 7 DOSE(S), 2 IN, TRANSDERMAL
     Route: 062
     Dates: start: 20021207

REACTIONS (1)
  - DEEP VEIN THROMBOSIS [None]
